FAERS Safety Report 9840707 (Version 2)
Quarter: 2014Q1

REPORT INFORMATION
  Report Type: Spontaneous
  Country: US (occurrence: US)
  Receive Date: 20140124
  Receipt Date: 20140227
  Transmission Date: 20141002
  Serious: No
  Sender: FDA-Public Use
  Company Number: PHEH2014US001523

PATIENT
  Sex: Female

DRUGS (3)
  1. DIOVAN [Suspect]
     Dosage: 320 MG, UNK
  2. SUCRALFATE [Concomitant]
     Dosage: UNK UKN, UNK
  3. FLOVENT [Concomitant]
     Dosage: UNK UKN, UNK

REACTIONS (2)
  - Asthma [Unknown]
  - Malaise [Unknown]
